FAERS Safety Report 8119534-1 (Version None)
Quarter: 2012Q1

REPORT INFORMATION
  Report Type: 
  Country: None (occurrence: None)
  Receive Date: 20120207
  Receipt Date: 20120125
  Transmission Date: 20120608
  Serious: Yes (Other)
  Sender: FDA-Public Use
  Company Number: PHEH2011US011039

PATIENT
  Sex: Female

DRUGS (3)
  1. AFINITOR [Concomitant]
     Dosage: UNK UKN, UNK
     Dates: start: 20110719
  2. SANDOSTATIN LAR [Suspect]
     Indication: CARCINOID TUMOUR
     Dosage: UNK UKN, UNK
     Dates: start: 20101102
  3. OCTREOTIDE ACETATE [Suspect]
     Indication: CARCINOID TUMOUR
     Dosage: UNK UKN, UNK
     Dates: start: 20101001

REACTIONS (3)
  - VENOUS OCCLUSION [None]
  - HEPATIC ARTERY OCCLUSION [None]
  - MESENTERIC OCCLUSION [None]
